FAERS Safety Report 9183250 (Version 1)
Quarter: 2013Q1

REPORT INFORMATION
  Report Type: Spontaneous
  Country: US (occurrence: US)
  Receive Date: 20130322
  Receipt Date: 20130322
  Transmission Date: 20140127
  Serious: No
  Sender: FDA-Public Use
  Company Number: US-BRISTOL-MYERS SQUIBB COMPANY-16941411

PATIENT
  Age: 70 Year
  Sex: Male
  Weight: 88.61 kg

DRUGS (27)
  1. ERBITUX [Suspect]
     Indication: LARYNGEAL CANCER
     Dates: start: 20120801, end: 20121017
  2. ALBUTEROL SULFATE [Concomitant]
     Dosage: STRENGH:0.63MG/ML3 NEB SOLUTION
     Dates: start: 20121128
  3. ASPIRIN [Concomitant]
     Dosage: 1 DF:325MG TAB
     Route: 048
     Dates: start: 20121128
  4. BUDESONIDE INHALER [Concomitant]
     Dosage: 1 DF:2 ML(0.25MG)?STRENGH:0.25MG/ML2
     Route: 055
     Dates: start: 20121128
  5. CARBIDOPA + LEVODOPA TABS 25MG/100MG [Concomitant]
     Dosage: 1 DF:1 TAB
     Route: 048
     Dates: start: 20121128
  6. CELEXA [Concomitant]
     Indication: DEPRESSION
     Dosage: STRENGTH:CELEXA40MG TAB?1 DF:1.5 TAB(60MG)/D
     Route: 048
     Dates: start: 20121128
  7. FLUCONAZOLE [Concomitant]
     Dosage: 1 DF:1 TAB(100MG)?FLUCONAZOLE 100MG TAB
     Route: 048
     Dates: start: 20121128
  8. FLUOXETINE [Concomitant]
     Dosage: 1 DF:1 20MG CAP(FOR 2 WEEKS)?FLUXETINE 20MG CAP?THEN AFTER THAT 2 CAPSULES PER DAY
     Route: 048
     Dates: start: 20121212
  9. FUROSEMIDE [Concomitant]
     Dosage: 1 DF:1 TAB?FUROSEMIDE 20MG TAB
     Route: 048
     Dates: start: 20121113
  10. GABAPENTIN [Concomitant]
     Dosage: 1 DF:1 300MG CAP?GABAPENTIN 300MG CAPSULE
     Route: 048
     Dates: start: 20121128
  11. JEVITY LIQUID [Concomitant]
     Dosage: JEVITY 1 CAL ORAL LIQUID
     Route: 048
     Dates: start: 20120408
  12. MEDROL [Concomitant]
     Dosage: MEDROL 4 MG TABS IN DOSE PACK AS DIRECTED
     Dates: start: 20121212
  13. METFORMIN HCL TABS 500MG [Concomitant]
     Dosage: 1 DF:1 TAB
     Route: 048
     Dates: start: 20120922
  14. METOPROLOL TARTRATE [Concomitant]
     Dosage: 1 DF:0.5 TAB(25MG) BID?METOPROLOL TARTRATE 25MG TABS
     Route: 048
     Dates: start: 20120922
  15. MIRALAX [Concomitant]
     Dosage: 17 GR ORAL POWDER MIX WITH EITHER TEA,COFFEE
     Route: 048
     Dates: start: 20121128
  16. MOBIC [Concomitant]
     Dosage: 1 DF:1 TAB(7.5MG)?MOBIC 7.5 MG TAB
     Route: 048
     Dates: start: 20121128
  17. MUCINEX [Concomitant]
     Dosage: 1 DF:4 TSP MUCINEX 2.5MG-100MG/5ML ORAL LIQ
     Route: 048
     Dates: start: 20121128
  18. ONDANSETRON [Concomitant]
     Dosage: 1 DF:1 TAB(8MG DISINTEGRATING TAB)
     Route: 048
     Dates: start: 20121019
  19. OXYCONTIN [Concomitant]
     Dosage: 1 DF:1 TAB(10MG EXTENDED RELEASE TAB)
     Route: 048
     Dates: start: 20121128
  20. PANTOPRAZOLE [Concomitant]
     Dosage: 1 DF:1 PACKET(40MG GRANULES DELAYES RELEASE MIX WITH APPLE JUICE)
     Route: 048
     Dates: start: 20121128
  21. PRAVASTATIN SODIUM [Concomitant]
     Dosage: 1 DF:1 TAB(20MG)
     Route: 048
     Dates: start: 20121128
  22. PSEUDOEPHEDRINE [Concomitant]
     Dosage: 1 DF:2 TABS(60MG)FOR EVERY 6HRS PRN
     Route: 048
     Dates: start: 20120912
  23. SENNA [Concomitant]
     Indication: CONSTIPATION
     Dosage: 1 DF:2 TABS(8.6MG TAB)
     Route: 048
     Dates: start: 20121128
  24. VITAMIN B6 [Concomitant]
     Dosage: 1 DF:0.5 TAB(100MG)
     Route: 048
     Dates: start: 20121128
  25. VITAMIN D3 [Concomitant]
     Dosage: 1 DF:1 TABS(1000 UNIT)
     Route: 048
     Dates: start: 20121128
  26. XANAX [Concomitant]
     Dosage: 1 DF:0.5 TAB(1MG )
     Route: 048
     Dates: start: 20120919
  27. ZYRTEC [Concomitant]
     Dosage: 1 DF:1 TAB(10MG)
     Route: 048
     Dates: start: 20120724

REACTIONS (3)
  - Increased upper airway secretion [Unknown]
  - Oropharyngeal pain [Unknown]
  - Decreased appetite [Unknown]
